FAERS Safety Report 10280699 (Version 3)
Quarter: 2014Q3

REPORT INFORMATION
  Report Type: Spontaneous
  Country: JP (occurrence: JP)
  Receive Date: 20140707
  Receipt Date: 20140813
  Transmission Date: 20150326
  Serious: Yes (Hospitalization, Other)
  Sender: FDA-Public Use
  Company Number: JP-PFIZER INC-2014167702

PATIENT
  Age: 85 Year
  Sex: Male

DRUGS (1)
  1. ZITHROMAC SR [Suspect]
     Active Substance: AZITHROMYCIN DIHYDRATE
     Indication: PNEUMONIA ASPIRATION
     Dosage: 2 G, SINGLE
     Route: 048

REACTIONS (3)
  - Sputum retention [Unknown]
  - Hypoxia [Unknown]
  - Pneumonia [Unknown]
